FAERS Safety Report 8226968-3 (Version None)
Quarter: 2012Q1

REPORT INFORMATION
  Report Type: 
  Country: None (occurrence: None)
  Receive Date: 20120322
  Receipt Date: 20120313
  Transmission Date: 20120608
  Serious: Yes (Other)
  Sender: FDA-Public Use
  Company Number: CO-JNJFOC-20120307210

PATIENT
  Age: 84 Year
  Sex: Female

DRUGS (2)
  1. CAPTOPRIL [Concomitant]
     Indication: PRODUCT USED FOR UNKNOWN INDICATION
     Route: 065
  2. GALANTAMINE HYDROBROMIDE [Suspect]
     Indication: AMNESIA
     Route: 048
     Dates: start: 20101117, end: 20110601

REACTIONS (2)
  - RESTLESSNESS [None]
  - ABNORMAL BEHAVIOUR [None]
